FAERS Safety Report 14826910 (Version 1)
Quarter: 2018Q2

REPORT INFORMATION
  Report Type: Spontaneous
  Country: US (occurrence: US)
  Receive Date: 20180430
  Receipt Date: 20180430
  Transmission Date: 20180711
  Serious: Yes (Other)
  Sender: FDA-Public Use
  Company Number: US-AUROBINDO-AUR-APL-2018-021805

PATIENT
  Age: 55 Year
  Sex: Male

DRUGS (6)
  1. DOLUTEGRAVIR [Suspect]
     Active Substance: DOLUTEGRAVIR
     Indication: HIV INFECTION
     Dosage: UNK
     Route: 065
  2. EFAVIRENZ. [Suspect]
     Active Substance: EFAVIRENZ
     Indication: HIV INFECTION
  3. ABACAVIR. [Suspect]
     Active Substance: ABACAVIR
     Indication: HIV INFECTION
     Dosage: UNK
     Route: 065
  4. LAMIVUDINE. [Suspect]
     Active Substance: LAMIVUDINE
     Indication: HIV INFECTION
     Dosage: UNK
     Route: 065
  5. TENOFOVIR DISOPROXIL FUMARATE. [Suspect]
     Active Substance: TENOFOVIR DISOPROXIL FUMARATE
     Indication: HIV INFECTION
     Dosage: UNK
     Route: 065
     Dates: start: 2015
  6. EMTRICITABINE [Suspect]
     Active Substance: EMTRICITABINE
     Indication: HIV INFECTION
     Dosage: UNK
     Route: 065
     Dates: start: 2015

REACTIONS (21)
  - Tubulointerstitial nephritis [Not Recovered/Not Resolved]
  - Pruritus [Unknown]
  - Haematuria [Unknown]
  - Mycobacterium kansasii infection [Unknown]
  - Toxicity to various agents [Unknown]
  - Papule [Unknown]
  - Immune reconstitution inflammatory syndrome [Unknown]
  - Hyperphosphataemia [Unknown]
  - Skin lesion [Unknown]
  - Cough [Unknown]
  - Weight decreased [Unknown]
  - Nephropathy toxic [Unknown]
  - Erythema [Unknown]
  - Inflammation [Unknown]
  - Pollakiuria [Unknown]
  - Pancytopenia [Unknown]
  - Hepatosplenomegaly [Unknown]
  - Hypercalcaemia [Unknown]
  - Nodule [Unknown]
  - Lymphadenopathy [Unknown]
  - Fatigue [Unknown]
